FAERS Safety Report 8743514 (Version 2)
Quarter: 2012Q4

REPORT INFORMATION
  Report Type: 
  Country: US (occurrence: US)
  Receive Date: 20120824
  Receipt Date: 20120830
  Transmission Date: 20130627
  Serious: Yes (Death, Hospitalization, Other)
  Sender: FDA-Public Use
  Company Number: US-B.I. PHARMACEUTICALS,INC./RIDGEFIELD-2012-BP-20589BP

PATIENT
  Sex: Male

DRUGS (1)
  1. PRADAXA [Suspect]
     Indication: ATRIAL FIBRILLATION
     Dosage: 300 mg

REACTIONS (5)
  - Gastrointestinal haemorrhage [Fatal]
  - Angina pectoris [Unknown]
  - Atrial fibrillation [Unknown]
  - Atrial flutter [Unknown]
  - Coronary artery occlusion [Unknown]
